FAERS Safety Report 21372539 (Version 2)
Quarter: 2022Q3

REPORT INFORMATION
  Report Type: Spontaneous
  Country: AU (occurrence: AU)
  Receive Date: 20220924
  Receipt Date: 20220928
  Transmission Date: 20221027
  Serious: Yes (Hospitalization, Other)
  Sender: FDA-Public Use
  Company Number: AU-ABBVIE-4129504

PATIENT
  Age: 74 Year
  Sex: Female

DRUGS (11)
  1. VENETOCLAX [Suspect]
     Active Substance: VENETOCLAX
     Indication: Chronic lymphocytic leukaemia
     Route: 048
  2. PREDNISONE [Concomitant]
     Active Substance: PREDNISONE
     Indication: Product used for unknown indication
  3. PREDNISONE [Concomitant]
     Active Substance: PREDNISONE
     Indication: Product used for unknown indication
  4. ONCOVIN [Concomitant]
     Active Substance: VINCRISTINE SULFATE
     Indication: Product used for unknown indication
  5. ONCOVIN [Concomitant]
     Active Substance: VINCRISTINE SULFATE
     Indication: Product used for unknown indication
  6. DOXORUBICIN [Concomitant]
     Active Substance: DOXORUBICIN
     Indication: Product used for unknown indication
  7. DOXORUBICIN [Concomitant]
     Active Substance: DOXORUBICIN
     Indication: Product used for unknown indication
  8. CYCLOPHOSPHAMIDE [Concomitant]
     Active Substance: CYCLOPHOSPHAMIDE
     Indication: Product used for unknown indication
  9. CYCLOPHOSPHAMIDE [Concomitant]
     Active Substance: CYCLOPHOSPHAMIDE
     Indication: Product used for unknown indication
  10. VINCRISTINE [Concomitant]
     Active Substance: VINCRISTINE
     Indication: Product used for unknown indication
  11. VINCRISTINE [Concomitant]
     Active Substance: VINCRISTINE
     Indication: Product used for unknown indication

REACTIONS (5)
  - Diffuse large B-cell lymphoma [Unknown]
  - Lymphadenopathy [Unknown]
  - Cytopenia [Unknown]
  - Pyrexia [Unknown]
  - Splenomegaly [Unknown]

NARRATIVE: CASE EVENT DATE: 20220701
